FAERS Safety Report 15540141 (Version 1)
Quarter: 2018Q4

REPORT INFORMATION
  Report Type: Report from Study
  Country: BR (occurrence: BR)
  Receive Date: 20181023
  Receipt Date: 20181023
  Transmission Date: 20190205
  Serious: Yes (Other)
  Sender: FDA-Public Use
  Company Number: BR-UCBSA-2018046730

PATIENT
  Age: 84 Year
  Sex: Male
  Weight: 62 kg

DRUGS (2)
  1. LEVETIRACETAM. [Suspect]
     Active Substance: LEVETIRACETAM
     Indication: SYNCOPE
     Dosage: 1 DF, 3X/DAY (TID)
     Route: 048
     Dates: start: 2017
  2. LEVETIRACETAM. [Suspect]
     Active Substance: LEVETIRACETAM
     Indication: OFF LABEL USE
     Dosage: 2 TABLETS IN THE MORNING, 1 TABLET IN THE AFTERNOON AND 2 TABLETS AT NIGHT, 3X/DAY (TID)
     Route: 048
     Dates: start: 20181001

REACTIONS (4)
  - Limb injury [Recovering/Resolving]
  - Off label use [Unknown]
  - Seizure [Recovering/Resolving]
  - Face injury [Recovering/Resolving]

NARRATIVE: CASE EVENT DATE: 2017
